FAERS Safety Report 12001596 (Version 1)
Quarter: 2016Q1

REPORT INFORMATION
  Report Type: Spontaneous
  Country: JP (occurrence: JP)
  Receive Date: 20160204
  Receipt Date: 20160204
  Transmission Date: 20160526
  Serious: Yes (Death, Other)
  Sender: FDA-Public Use
  Company Number: JP-CELGENE-JPN-2016015561

PATIENT
  Sex: Female

DRUGS (2)
  1. REVLIMID [Suspect]
     Active Substance: LENALIDOMIDE
     Indication: PLASMA CELL MYELOMA
     Route: 048
  2. LENADEX [Suspect]
     Active Substance: DEXAMETHASONE ACETATE
     Indication: PLASMA CELL MYELOMA
     Route: 048

REACTIONS (6)
  - Pneumonia [Fatal]
  - Sepsis [Unknown]
  - Platelet count decreased [Unknown]
  - Haemorrhage [Unknown]
  - Urinary tract infection [Unknown]
  - Dementia [Unknown]

NARRATIVE: CASE EVENT DATE: 201510
